FAERS Safety Report 7289204-0 (Version None)
Quarter: 2011Q1

REPORT INFORMATION
  Report Type: 
  Country: None (occurrence: None)
  Receive Date: 20110211
  Receipt Date: 20110202
  Transmission Date: 20110831
  Serious: Yes (Hospitalization)
  Sender: FDA-Public Use
  Company Number: TR-ELI_LILLY_AND_COMPANY-TR201011002241

PATIENT
  Sex: Female

DRUGS (4)
  1. HUMULIN N [Suspect]
     Indication: GESTATIONAL DIABETES
     Dosage: 1 U, DAILY (1/D)
     Route: 058
  2. FOLIC ACID W/IRON [Concomitant]
     Dosage: UNK, DAILY (1/D)
  3. HUMULIN R [Suspect]
     Indication: GESTATIONAL DIABETES
     Dosage: 1 U, 3/D
     Route: 058
  4. ELEVIT [Concomitant]
     Dosage: UNK, DAILY (1/D)

REACTIONS (2)
  - DRUG EXPOSURE DURING PREGNANCY [None]
  - POLYHYDRAMNIOS [None]
